FAERS Safety Report 5671291-4 (Version None)
Quarter: 2008Q1

REPORT INFORMATION
  Report Type: 
  Country: None (occurrence: None)
  Receive Date: 20080318
  Receipt Date: 20080312
  Transmission Date: 20080703
  Serious: Yes (Other)
  Sender: FDA-Public Use
  Company Number: FR-BRISTOL-MYERS SQUIBB COMPANY-14074488

PATIENT
  Age: 1 Day
  Sex: Male

DRUGS (5)
  1. REYATAZ [Suspect]
     Indication: HIV INFECTION
     Route: 064
  2. NORVIR [Concomitant]
  3. EPIVIR [Concomitant]
  4. VIRAMUNE [Concomitant]
  5. RETROVIR [Concomitant]

REACTIONS (3)
  - FOETAL ARRHYTHMIA [None]
  - PREGNANCY [None]
  - PREMATURE BABY [None]
